FAERS Safety Report 6919473-5 (Version None)
Quarter: 2010Q3

REPORT INFORMATION
  Report Type: 
  Country: None (occurrence: None)
  Receive Date: 20100811
  Receipt Date: 20100804
  Transmission Date: 20110219
  Serious: Yes (Other)
  Sender: FDA-Public Use
  Company Number: B0669346A

PATIENT
  Sex: Male

DRUGS (2)
  1. AUGMENTIN '125' [Suspect]
     Indication: ANTIBIOTIC PROPHYLAXIS
     Dosage: 125MG PER DAY
     Route: 048
     Dates: start: 20100512, end: 20100512
  2. METHADONE HYDROCHLORIDE [Concomitant]
     Route: 065
     Dates: start: 20091201, end: 20100512

REACTIONS (5)
  - ANAPHYLACTIC REACTION [None]
  - OEDEMA PERIPHERAL [None]
  - PHARYNGEAL OEDEMA [None]
  - RASH [None]
  - SWELLING FACE [None]
